FAERS Safety Report 13342815 (Version 1)
Quarter: 2017Q1

REPORT INFORMATION
  Report Type: Report from Study
  Country: US (occurrence: US)
  Receive Date: 20170316
  Receipt Date: 20170316
  Transmission Date: 20170428
  Serious: No
  Sender: FDA-Public Use
  Company Number: US-REGENERON PHARMACEUTICALS, INC.-2016-16414

PATIENT

DRUGS (1)
  1. ARCALYST [Suspect]
     Active Substance: RILONACEPT
     Indication: CONNECTIVE TISSUE DISORDER
     Dosage: 160 MG MILLIGRAM(S), WEEKLY
     Route: 058
     Dates: start: 20160407

REACTIONS (3)
  - Off label use [Unknown]
  - Dyspnoea [Recovered/Resolved]
  - Rash [Unknown]
